FAERS Safety Report 4676711-X (Version None)
Quarter: 2005Q2

REPORT INFORMATION
  Report Type: 
  Country: None (occurrence: None)
  Receive Date: 20050527
  Receipt Date: 20050413
  Transmission Date: 20051028
  Serious: Yes (Other)
  Sender: FDA-Public Use
  Company Number: US-JNJFOC-20050506777

PATIENT
  Sex: Female

DRUGS (9)
  1. TYLENOL (CAPLET) [Suspect]
  2. TYLENOL (CAPLET) [Suspect]
     Indication: ARTHRITIS
     Dosage: 1300 MG,  BID-TID
  3. METOPROLOL SUCCINATE [Concomitant]
  4. METOPROLOL SUCCINATE [Concomitant]
  5. METOPROLOL SUCCINATE [Concomitant]
  6. LIPITOR [Concomitant]
  7. ASPIRIN [Concomitant]
  8. HYDROCHLOROTHIAZIDE [Concomitant]
  9. ACTONEL [Concomitant]

REACTIONS (2)
  - ASTHENIA [None]
  - BLOOD PRESSURE INCREASED [None]
